FAERS Safety Report 4786032-2 (Version None)
Quarter: 2005Q3

REPORT INFORMATION
  Report Type: 
  Country: None (occurrence: None)
  Receive Date: 20050930
  Receipt Date: 20050921
  Transmission Date: 20060218
  Serious: Yes (Life-Threatening)
  Sender: FDA-Public Use
  Company Number: 2005JP001850

PATIENT
  Age: 70 Year
  Sex: Female

DRUGS (4)
  1. FUNGUARD(MICAFUNGIN) INJECTION [Suspect]
     Dosage: 50.00 MG, UID/QD, IV DRIP
     Route: 041
     Dates: start: 20050920, end: 20050920
  2. DIFLUCAN [Concomitant]
  3. TIENAM/SWE/(IMIPENEM, CILASTATIN) [Concomitant]
  4. ZITHROMAX [Concomitant]

REACTIONS (2)
  - LARGE INTESTINAL HAEMORRHAGE [None]
  - MELAENA [None]
